FAERS Safety Report 8536588-9 (Version None)
Quarter: 2012Q3

REPORT INFORMATION
  Report Type: 
  Country: None (occurrence: None)
  Receive Date: 20120725
  Receipt Date: 20120719
  Transmission Date: 20120928
  Serious: Yes (Other)
  Sender: FDA-Public Use
  Company Number: US-BAYER-2012-072860

PATIENT
  Age: 66 Year
  Sex: Female

DRUGS (7)
  1. TRILIPIX [Suspect]
  2. ASPIRIN [Suspect]
  3. TRICOR [Suspect]
  4. DYRENIUM [Suspect]
  5. AMLODIPINE [Suspect]
  6. SPIRONOLACTONE [Suspect]
  7. CARVEDILOL [Suspect]

REACTIONS (5)
  - CARDIAC DISORDER [None]
  - DISCOMFORT [None]
  - MUSCULAR WEAKNESS [None]
  - MUSCLE SPASMS [None]
  - OROPHARYNGEAL SPASM [None]
